FAERS Safety Report 5592442-6 (Version None)
Quarter: 2008Q1

REPORT INFORMATION
  Report Type: 
  Country: None (occurrence: None)
  Receive Date: 20080111
  Receipt Date: 20080108
  Transmission Date: 20080703
  Serious: Yes (Life-Threatening, Hospitalization)
  Sender: FDA-Public Use
  Company Number: 2008-00049

PATIENT
  Sex: Male

DRUGS (3)
  1. VELCADE [Suspect]
     Indication: MULTIPLE MYELOMA
     Dosage: 1.30 MG/M2, INTRAVENOUS
     Route: 042
     Dates: start: 20070907, end: 20071106
  2. CYCLOPHOSPHAMIDE [Suspect]
     Indication: MULTIPLE MYELOMA
     Dosage: 1206.00 MG, INTRAVENOUS
     Route: 042
     Dates: start: 20070907, end: 20071027
  3. DEXAMETHASONE TAB [Suspect]
     Indication: MULTIPLE MYELOMA
     Dosage: 40.00 MG, ORAL
     Route: 048
     Dates: start: 20070907, end: 20071106

REACTIONS (16)
  - ACUTE RESPIRATORY DISTRESS SYNDROME [None]
  - BACTERIA STOOL IDENTIFIED [None]
  - BACTERIAL SEPSIS [None]
  - CANDIDIASIS [None]
  - CHEYNE-STOKES RESPIRATION [None]
  - CYANOSIS [None]
  - DEEP VEIN THROMBOSIS [None]
  - ENCEPHALITIS HERPES [None]
  - ENTEROCOCCAL INFECTION [None]
  - FUNGAL SEPSIS [None]
  - HERPES SIMPLEX [None]
  - HERPES ZOSTER [None]
  - HYPOTENSION [None]
  - LOSS OF CONSCIOUSNESS [None]
  - RESPIRATORY FAILURE [None]
  - SEPSIS [None]
